FAERS Safety Report 14991207 (Version 2)
Quarter: 2018Q3

REPORT INFORMATION
  Report Type: Spontaneous
  Country: CA (occurrence: CA)
  Receive Date: 20180608
  Receipt Date: 20180927
  Transmission Date: 20181010
  Serious: Yes (Life-Threatening)
  Sender: FDA-Public Use
  Company Number: CA-FERRINGPH-2018FE02841

PATIENT

DRUGS (1)
  1. PICO?SALAX [Suspect]
     Active Substance: ANHYDROUS CITRIC ACID\MAGNESIUM OXIDE\SODIUM PICOSULFATE
     Indication: BOWEL PREPARATION
     Dosage: 2 SACHETS, 1 EVERY 1 DAY
     Route: 048
     Dates: start: 20170916, end: 20170917

REACTIONS (2)
  - Asthenia [Recovered/Resolved]
  - Loss of consciousness [Recovered/Resolved]
